FAERS Safety Report 25317727 (Version 3)
Quarter: 2025Q2

REPORT INFORMATION
  Report Type: Report from Study
  Country: US (occurrence: US)
  Receive Date: 20250515
  Receipt Date: 20250521
  Transmission Date: 20250716
  Serious: Yes (Other)
  Sender: NOVARTIS
  Company Number: US-002147023-NVSC2024US073570

PATIENT
  Sex: Female

DRUGS (4)
  1. KISQALI [Suspect]
     Active Substance: RIBOCICLIB SUCCINATE
     Indication: Breast cancer metastatic
     Route: 048
  2. KISQALI [Suspect]
     Active Substance: RIBOCICLIB SUCCINATE
     Route: 048
  3. KISQALI FEMARA CO-PACK [Suspect]
     Active Substance: LETROZOLE\RIBOCICLIB SUCCINATE
     Indication: Product used for unknown indication
     Route: 048
  4. KISQALI FEMARA CO-PACK [Suspect]
     Active Substance: LETROZOLE\RIBOCICLIB SUCCINATE
     Indication: Product used for unknown indication
     Route: 048

REACTIONS (8)
  - Pneumonia [Unknown]
  - Neuropathy peripheral [Unknown]
  - Pneumonia aspiration [Unknown]
  - Diarrhoea [Recovering/Resolving]
  - Illness [Unknown]
  - Tooth loss [Unknown]
  - Tooth erosion [Unknown]
  - Adverse drug reaction [Unknown]
